FAERS Safety Report 6304591-5 (Version None)
Quarter: 2009Q3

REPORT INFORMATION
  Report Type: 
  Country: None (occurrence: None)
  Receive Date: 20090806
  Receipt Date: 20090724
  Transmission Date: 20100115
  Serious: Yes (Hospitalization)
  Sender: FDA-Public Use
  Company Number: 2009AL000589

PATIENT
  Age: 85 Year
  Sex: Female

DRUGS (3)
  1. DIGOXIN [Suspect]
     Dosage: PO
     Route: 048
  2. PROMETHAZINE [Concomitant]
  3. DIAZEPAM [Concomitant]

REACTIONS (10)
  - ACTIVITIES OF DAILY LIVING IMPAIRED [None]
  - ANXIETY [None]
  - ECONOMIC PROBLEM [None]
  - EMOTIONAL DISTRESS [None]
  - FAMILY STRESS [None]
  - FEAR [None]
  - ILL-DEFINED DISORDER [None]
  - MULTIPLE INJURIES [None]
  - PAIN [None]
  - SOCIAL PROBLEM [None]
